FAERS Safety Report 8989754 (Version 1)
Quarter: 2012Q4

REPORT INFORMATION
  Report Type: Report from Study
  Country: US (occurrence: US)
  Receive Date: 20121228
  Receipt Date: 20121228
  Transmission Date: 20130627
  Serious: Yes (Hospitalization, Other)
  Sender: FDA-Public Use
  Company Number: US-ABBOTT-12P-163-1025494-00

PATIENT
  Sex: Male

DRUGS (1)
  1. HUMIRA [Suspect]
     Indication: PRODUCT USED FOR UNKNOWN INDICATION
     Dates: start: 201009

REACTIONS (7)
  - Oesophageal oedema [Unknown]
  - Anaemia [Unknown]
  - Haemoglobin decreased [Unknown]
  - Deep vein thrombosis [Unknown]
  - Haematochezia [Unknown]
  - Colonic fistula [Unknown]
  - Muscle atrophy [Unknown]
